FAERS Safety Report 13527319 (Version 2)
Quarter: 2017Q2

REPORT INFORMATION
  Report Type: Spontaneous
  Country: US (occurrence: US)
  Receive Date: 20170509
  Receipt Date: 20170510
  Transmission Date: 20170830
  Serious: Yes (Hospitalization, Other)
  Sender: FDA-Public Use
  Company Number: US-JNJFOC-20170503507

PATIENT
  Sex: Female

DRUGS (1)
  1. XARELTO [Suspect]
     Active Substance: RIVAROXABAN
     Indication: DEEP VEIN THROMBOSIS
     Dosage: 15 MG TWICE DAILY FOR A WEEK
     Route: 048

REACTIONS (5)
  - Scleroedema [Unknown]
  - Gastrointestinal haemorrhage [Unknown]
  - Vein disorder [Unknown]
  - Arteriovenous malformation [Unknown]
  - Necrosis [Unknown]
